FAERS Safety Report 14344405 (Version 1)
Quarter: 2018Q1

REPORT INFORMATION
  Report Type: Spontaneous
  Country: US (occurrence: US)
  Receive Date: 20180102
  Receipt Date: 20180102
  Transmission Date: 20180509
  Serious: Yes (Other)
  Sender: FDA-Public Use
  Company Number: US-PURDUE PHARMA-USA-2016-0135221

PATIENT
  Sex: Male

DRUGS (2)
  1. MS CONTIN [Suspect]
     Active Substance: MORPHINE SULFATE
     Indication: PRODUCT USED FOR UNKNOWN INDICATION
     Dosage: UNK, 1/6 OF PREVIOUS DOSE
     Route: 048
     Dates: start: 2016
  2. MS CONTIN [Suspect]
     Active Substance: MORPHINE SULFATE
     Dosage: UNK
     Route: 048
     Dates: end: 2016

REACTIONS (3)
  - Anxiety [Unknown]
  - Drug abuse [Unknown]
  - Unevaluable event [Unknown]

NARRATIVE: CASE EVENT DATE: 2016
